FAERS Safety Report 6535029-0 (Version None)
Quarter: 2010Q1

REPORT INFORMATION
  Report Type: 
  Country: None (occurrence: None)
  Receive Date: 20100111
  Receipt Date: 20100111
  Transmission Date: 20100710
  Serious: Yes (Hospitalization)
  Sender: FDA-Public Use
  Company Number: None

PATIENT
  Age: 70 Year
  Sex: Male

DRUGS (1)
  1. GEMFIBROZIL [Suspect]
     Indication: HYPERLIPIDAEMIA
     Dosage: 1200 MG BID PO
     Route: 048
     Dates: start: 20091216, end: 20100106

REACTIONS (10)
  - DECREASED ACTIVITY [None]
  - DECREASED APPETITE [None]
  - DIZZINESS POSTURAL [None]
  - DYSSTASIA [None]
  - EXERCISE TOLERANCE DECREASED [None]
  - HYPOPHAGIA [None]
  - MALAISE [None]
  - NAUSEA [None]
  - OEDEMA [None]
  - RHABDOMYOLYSIS [None]
